FAERS Safety Report 10085586 (Version 1)
Quarter: 2014Q2

REPORT INFORMATION
  Report Type: Report from Study
  Country: US (occurrence: US)
  Receive Date: 20140418
  Receipt Date: 20140418
  Transmission Date: 20141212
  Serious: Yes (Hospitalization)
  Sender: FDA-Public Use
  Company Number: US-ASTRAZENECA-2014SE26038

PATIENT
  Age: 57 Year
  Sex: Female
  Weight: 67.1 kg

DRUGS (6)
  1. LISINOPRIL [Suspect]
     Indication: BLOOD PRESSURE ABNORMAL
     Route: 048
     Dates: start: 2007
  2. TOPROL-XL [Suspect]
     Indication: BLOOD PRESSURE ABNORMAL
     Route: 048
     Dates: start: 2001
  3. PLAVIX [Concomitant]
     Indication: ANTICOAGULANT THERAPY
     Dates: start: 2001
  4. VITORIN [Concomitant]
     Indication: BLOOD CHOLESTEROL ABNORMAL
     Dosage: 10/40MG DAILY
     Dates: start: 2011
  5. ASPIRIN [Concomitant]
     Indication: BLOOD DISORDER
     Dates: start: 2001
  6. OXYCODONE [Concomitant]
     Indication: PAIN
     Dosage: 10/325MG Q6H
     Dates: start: 2014

REACTIONS (10)
  - Arthritis [Unknown]
  - Back pain [Not Recovered/Not Resolved]
  - Heart rate increased [Recovered/Resolved]
  - Medical device site reaction [Not Recovered/Not Resolved]
  - Blood pressure increased [Recovered/Resolved]
  - Stress [Not Recovered/Not Resolved]
  - Depressed mood [Not Recovered/Not Resolved]
  - Weight decreased [Not Recovered/Not Resolved]
  - Medical device complication [Not Recovered/Not Resolved]
  - Confusional state [Not Recovered/Not Resolved]
